FAERS Safety Report 7552214-X (Version None)
Quarter: 2011Q2

REPORT INFORMATION
  Report Type: 
  Country: None (occurrence: None)
  Receive Date: 20110616
  Receipt Date: 20110613
  Transmission Date: 20111010
  Serious: Yes (Hospitalization)
  Sender: FDA-Public Use
  Company Number: SE-MERCK-1106SWE00026

PATIENT
  Age: 78 Year
  Sex: Female

DRUGS (9)
  1. ACETYLCYSTEINE [Concomitant]
     Route: 048
  2. BUDESONIDE AND FORMOTEROL FUMARATE [Concomitant]
     Route: 055
  3. TIOTROPIUM BROMIDE [Concomitant]
     Route: 055
  4. TERBUTALINE SULFATE [Concomitant]
     Route: 055
  5. CALCIUM CARBONATE [Concomitant]
     Route: 048
  6. FOSAMAX [Suspect]
     Indication: OSTEOPOROSIS
     Route: 048
  7. SIMVASTATIN [Concomitant]
     Route: 048
  8. ZOPICLONE [Concomitant]
     Route: 048
  9. PREDNISOLONE [Concomitant]
     Route: 048

REACTIONS (1)
  - PATHOLOGICAL FRACTURE [None]
